FAERS Safety Report 10050456 (Version 2)
Quarter: 2014Q2

REPORT INFORMATION
  Report Type: Report from Study
  Country: DE (occurrence: DE)
  Receive Date: 20140401
  Receipt Date: 20140501
  Transmission Date: 20141212
  Serious: Yes (Other)
  Sender: FDA-Public Use
  Company Number: DE-SA-2014SA037704

PATIENT
  Age: 41 Year
  Sex: Female

DRUGS (2)
  1. LEMTRADA [Suspect]
     Indication: MULTIPLE SCLEROSIS
     Route: 042
     Dates: start: 20140106, end: 20140106
  2. LEMTRADA [Suspect]
     Indication: MULTIPLE SCLEROSIS
     Route: 042
     Dates: end: 20140110

REACTIONS (6)
  - Syncope [Recovering/Resolving]
  - Cardiovascular disorder [Recovering/Resolving]
  - Fatigue [Recovering/Resolving]
  - Cystitis [Recovering/Resolving]
  - Acne [Recovered/Resolved]
  - Rash generalised [Recovered/Resolved]
